FAERS Safety Report 23247024 (Version 2)
Quarter: 2024Q2

REPORT INFORMATION
  Report Type: Spontaneous
  Country: US (occurrence: US)
  Receive Date: 20231130
  Receipt Date: 20240628
  Transmission Date: 20240716
  Serious: No
  Sender: FDA-Public Use
  Company Number: US-ABBVIE-5517850

PATIENT
  Sex: Female

DRUGS (1)
  1. REFRESH RELIEVA PRESERVATIVE FREE [Suspect]
     Active Substance: CARBOXYMETHYLCELLULOSE SODIUM\GLYCERIN
     Indication: Product used for unknown indication
     Dosage: FORM STRENGTH: CMC 5MG/ML;GLYCERIN 9MG.ML SOL MDPF
     Route: 047

REACTIONS (1)
  - Eye irritation [Recovered/Resolved]
